FAERS Safety Report 10353243 (Version 1)
Quarter: 2014Q3

REPORT INFORMATION
  Report Type: Spontaneous
  Country: GB (occurrence: GB)
  Receive Date: 20140730
  Receipt Date: 20140730
  Transmission Date: 20150326
  Serious: Yes (Death, Hospitalization)
  Sender: FDA-Public Use
  Company Number: PHHY2014GB091906

PATIENT
  Age: 63 Year
  Sex: Female

DRUGS (4)
  1. LEFLUNOMIDE. [Suspect]
     Active Substance: LEFLUNOMIDE
     Indication: RHEUMATOID ARTHRITIS
  2. PREDNISOLONE. [Suspect]
     Active Substance: PREDNISOLONE
     Indication: RHEUMATOID ARTHRITIS
  3. PREDNISOLONE. [Suspect]
     Active Substance: PREDNISOLONE
     Indication: VASCULITIS
  4. LEFLUNOMIDE. [Suspect]
     Active Substance: LEFLUNOMIDE
     Indication: VASCULITIS

REACTIONS (7)
  - Death [Fatal]
  - Body temperature increased [Unknown]
  - Arthritis bacterial [Unknown]
  - Staphylococcal infection [Unknown]
  - Haemodynamic instability [Unknown]
  - Heart rate increased [Unknown]
  - Septic shock [Unknown]
